FAERS Safety Report 12975749 (Version 4)
Quarter: 2016Q4

REPORT INFORMATION
  Report Type: Report from Study
  Country: None (occurrence: ES)
  Receive Date: 20161125
  Receipt Date: 20161230
  Transmission Date: 20170207
  Serious: Yes (Hospitalization, Other)
  Sender: FDA-Public Use
  Company Number: ES-ABBVIE-16P-144-1701388-00

PATIENT
  Age: 62 Year
  Sex: Female

DRUGS (3)
  1. DUODOPA [Suspect]
     Active Substance: CARBIDOPA\LEVODOPA
     Dosage: MORNING DOSE : 12.50ML + 3; CONTINOUS DOSE: 3.50ML/HOUR; EXTRA DOSE 3.00ML
     Route: 050
     Dates: start: 2016
  2. DUODOPA [Suspect]
     Active Substance: CARBIDOPA\LEVODOPA
     Indication: PARKINSON^S DISEASE
     Route: 050
     Dates: start: 201603, end: 201609
  3. DUODOPA [Suspect]
     Active Substance: CARBIDOPA\LEVODOPA
     Route: 050
     Dates: start: 201609, end: 2016

REACTIONS (13)
  - Malaise [Recovered/Resolved]
  - Tearfulness [Unknown]
  - Depression [Not Recovered/Not Resolved]
  - Anxiety [Recovered/Resolved]
  - Freezing phenomenon [Not Recovered/Not Resolved]
  - Drug ineffective [Not Recovered/Not Resolved]
  - Anxiety [Not Recovered/Not Resolved]
  - Device colour issue [Unknown]
  - On and off phenomenon [Recovering/Resolving]
  - Drug effect decreased [Recovered/Resolved]
  - Suicidal ideation [Recovered/Resolved]
  - Fall [Not Recovered/Not Resolved]
  - Device deployment issue [Unknown]

NARRATIVE: CASE EVENT DATE: 2016
